FAERS Safety Report 9717212 (Version 4)
Quarter: 2014Q1

REPORT INFORMATION
  Report Type: Report from Study
  Country: GR (occurrence: GR)
  Receive Date: 20131127
  Receipt Date: 20140310
  Transmission Date: 20141002
  Serious: Yes (Hospitalization, Other)
  Sender: FDA-Public Use
  Company Number: GR-MERCK-1311GRC008682

PATIENT
  Age: 71 Year
  Sex: Female
  Weight: 60 kg

DRUGS (15)
  1. DEXAMETHASONE [Suspect]
     Indication: PLASMA CELL MYELOMA
     Dosage: 20 MG, ONE, TWO, FOUR, FIVE, EIGHT, NINE, ELEVEN, TWELVE EVERY 21 DAYS
     Route: 048
     Dates: start: 20121127, end: 20130420
  2. STUDY DRUG (UNSPECIFIED) [Suspect]
     Indication: PLASMA CELL MYELOMA
     Dosage: OVER 30 MINUTES EVERY 21 DAYS
     Route: 042
     Dates: start: 20121127, end: 20130419
  3. BORTEZOMIB [Suspect]
     Indication: PLASMA CELL MYELOMA
     Dosage: 1.3 MG/M2,DAYS ONE, FOUR, EIGHT, ELEVEN EVERY 21 DAYS
     Route: 058
     Dates: start: 20121127, end: 20130419
  4. VALTREX [Concomitant]
     Indication: PROPHYLAXIS
     Dosage: UNK
     Dates: start: 20090623
  5. BACTRIMEL [Concomitant]
     Indication: INFECTION PROPHYLAXIS
     Dosage: UNK
     Dates: start: 20090623
  6. DUROGESIC [Concomitant]
     Indication: BONE PAIN
     Dosage: UNK
     Dates: start: 20130121
  7. LYRICA [Concomitant]
     Indication: PERIPHERAL SENSORY NEUROPATHY
     Dosage: UNK
     Dates: start: 20130117
  8. ABSTRAL [Concomitant]
     Indication: BONE PAIN
     Dosage: UNK
     Dates: start: 20130121
  9. TRAMAL [Concomitant]
     Indication: BONE PAIN
     Dosage: UNK
     Dates: start: 20130121
  10. NEUROBION [Concomitant]
     Indication: PERIPHERAL SENSORY NEUROPATHY
     Dosage: UNK
     Dates: start: 20130117
  11. THYROHORMONE [Concomitant]
     Indication: HYPOTHYROIDISM
     Dosage: UNK
     Dates: start: 1999
  12. PENRAZOLE [Concomitant]
     Indication: PROPHYLAXIS AGAINST GASTROINTESTINAL ULCER
     Dosage: UNK
     Dates: start: 20121120
  13. GENTAMICIN [Concomitant]
     Dosage: UNK
     Dates: start: 20130528
  14. CYMEVENE CAPSULES [Concomitant]
     Dosage: UNK
     Dates: start: 20130524
  15. IVOR [Concomitant]
     Dosage: UNK
     Dates: start: 20130412, end: 20130424

REACTIONS (4)
  - Large intestinal haemorrhage [Recovered/Resolved]
  - Cytomegalovirus colitis [Recovered/Resolved]
  - Bacteraemia [Recovered/Resolved]
  - Renal failure acute [Not Recovered/Not Resolved]
